FAERS Safety Report 18255001 (Version 1)
Quarter: 2020Q3

REPORT INFORMATION
  Report Type: Other
  Country: FR (occurrence: FR)
  Receive Date: 20200911
  Receipt Date: 20200911
  Transmission Date: 20201103
  Serious: Yes (Death, Life-Threatening, Other)
  Sender: FDA-Public Use
  Company Number: FR-DENTSPLY-2020SCDP000276

PATIENT
  Age: 92 Year
  Sex: Female
  Weight: 53 kg

DRUGS (8)
  1. LERCANIDIPINE HYDROCHLORIDE [Concomitant]
     Active Substance: LERCANIDIPINE HYDROCHLORIDE
     Indication: CARDIOVASCULAR DISORDER
     Dosage: UNK
     Route: 048
     Dates: end: 20200713
  2. CEFAZOLINE PANPHARMA [Suspect]
     Active Substance: CEFAZOLIN SODIUM
     Indication: ANTIBIOTIC PROPHYLAXIS
     Dosage: 2 GRAM, TOTAL
     Route: 042
     Dates: start: 20200713, end: 20200713
  3. MEPIVACAINE HCL [Suspect]
     Active Substance: MEPIVACAINE HYDROCHLORIDE
     Indication: NERVE BLOCK
     Dosage: 20 MILLILITER, CARBOCAINE 20 MG/ML, SOLUTION INJECTABLE
     Route: 058
     Dates: start: 20200713, end: 20200713
  4. SOTALOL HYDROCHLORIDE. [Concomitant]
     Active Substance: SOTALOL HYDROCHLORIDE
     Indication: CARDIOVASCULAR DISORDER
     Dosage: 80 MILLIGRAM
     Route: 048
     Dates: end: 20200713
  5. KARDEGIC [Concomitant]
     Active Substance: ASPIRIN DL-LYSINE
     Indication: CARDIOVASCULAR DISORDER
     Dosage: 75 MILLIGRAM
     Route: 048
     Dates: end: 20200713
  6. GINKOR [GINKGO BILOBA EXTRACT;TROXERUTIN] [Concomitant]
     Indication: PRODUCT USED FOR UNKNOWN INDICATION
     Dosage: 1 DOSAGE FORM
     Route: 048
     Dates: end: 20200713
  7. OMEPRAZOLE. [Concomitant]
     Active Substance: OMEPRAZOLE
     Indication: PRODUCT USED FOR UNKNOWN INDICATION
     Dosage: 20 MILLIGRAM
     Route: 048
     Dates: end: 20200713
  8. MIDAZOLAM. [Suspect]
     Active Substance: MIDAZOLAM
     Indication: ANAESTHESIA
     Dosage: 3 MILLIGRAM, TOTAL
     Route: 042
     Dates: start: 20200713, end: 20200713

REACTIONS (3)
  - Loss of consciousness [Fatal]
  - Cardio-respiratory arrest [Fatal]
  - Hypotension [Fatal]

NARRATIVE: CASE EVENT DATE: 20200713
